FAERS Safety Report 18697899 (Version 1)
Quarter: 2021Q1

REPORT INFORMATION
  Report Type: Spontaneous
  Country: GB (occurrence: GB)
  Receive Date: 20210104
  Receipt Date: 20210104
  Transmission Date: 20210419
  Serious: Yes (Hospitalization)
  Sender: FDA-Public Use
  Company Number: GB-TEVA-2020-GB-1864310

PATIENT
  Age: 30 Year

DRUGS (3)
  1. FLUOXETINE [Concomitant]
     Active Substance: FLUOXETINE HYDROCHLORIDE
  2. TENOFOVIR DISOPROXIL [Suspect]
     Active Substance: TENOFOVIR DISOPROXIL
     Route: 065
     Dates: start: 20180430
  3. EMTRICITABINE [Suspect]
     Active Substance: EMTRICITABINE
     Route: 065
     Dates: start: 20180430

REACTIONS (3)
  - Abdominal pain [Unknown]
  - Pancreatitis acute [Recovered/Resolved]
  - Steatorrhoea [Unknown]

NARRATIVE: CASE EVENT DATE: 20180522
